FAERS Safety Report 23068805 (Version 1)
Quarter: 2023Q4

REPORT INFORMATION
  Report Type: Spontaneous
  Country: CZ (occurrence: CZ)
  Receive Date: 20231016
  Receipt Date: 20231016
  Transmission Date: 20240110
  Serious: Yes (Other)
  Sender: FDA-Public Use
  Company Number: None

PATIENT
  Age: 3 Year
  Sex: Female
  Weight: 21 kg

DRUGS (3)
  1. NGENLA [Suspect]
     Active Substance: SOMATROGON-GHLA
     Indication: Growth hormone deficiency
     Dosage: ONCE A WEEK 10 MG
     Route: 058
     Dates: start: 20230723, end: 20230820
  2. EUTHYROX [Concomitant]
     Active Substance: LEVOTHYROXINE SODIUM
     Indication: Thyroid stimulating hormone deficiency
     Dosage: 50 UG, DAILY
     Route: 048
     Dates: start: 202103
  3. HYDROCORTISONE [Concomitant]
     Active Substance: HYDROCORTISONE
     Indication: Adrenocorticotropic hormone deficiency
     Dosage: 10 MG, DAILY
     Route: 048
     Dates: start: 2021

REACTIONS (5)
  - Abnormal behaviour [Recovered/Resolved]
  - Middle insomnia [Recovered/Resolved]
  - Hypoglycaemia [Recovered/Resolved]
  - Increased appetite [Recovered/Resolved]
  - Aggression [Recovered/Resolved]

NARRATIVE: CASE EVENT DATE: 20230701
